FAERS Safety Report 9677566 (Version 1)
Quarter: 2013Q4

REPORT INFORMATION
  Report Type: Report from Study
  Country: CA (occurrence: CA)
  Receive Date: 20131108
  Receipt Date: 20131108
  Transmission Date: 20140711
  Serious: Yes (Hospitalization)
  Sender: FDA-Public Use
  Company Number: CA-JNJFOC-20131100311

PATIENT
  Age: 14 Year
  Sex: Female
  Weight: 48.99 kg

DRUGS (1)
  1. REMICADE [Suspect]
     Indication: UVEITIS
     Route: 042
     Dates: start: 20131008, end: 20131008

REACTIONS (2)
  - Adverse drug reaction [Unknown]
  - Off label use [Unknown]
